FAERS Safety Report 9031987 (Version 1)
Quarter: 2013Q1

REPORT INFORMATION
  Report Type: Report from Study
  Country: SE (occurrence: SE)
  Receive Date: 20130125
  Receipt Date: 20130125
  Transmission Date: 20140127
  Serious: Yes (Death, Hospitalization)
  Sender: FDA-Public Use
  Company Number: SE-ASTELLAS-2013US000912

PATIENT
  Age: 78 Year
  Sex: Male

DRUGS (3)
  1. ERLOTINIB TABLET [Suspect]
     Indication: PANCREATIC CARCINOMA
     Dosage: 100 MG, UNKNOWN/D
     Route: 048
     Dates: start: 20110530, end: 20110712
  2. GEMZAR [Suspect]
     Indication: PANCREATIC CARCINOMA
     Dosage: 2100 MG, UNKNOWN/D
     Route: 042
     Dates: start: 20110530, end: 20110712
  3. DALTEPARIN                         /01708302/ [Concomitant]
     Indication: PRODUCT USED FOR UNKNOWN INDICATION
     Dosage: UNK
     Route: 065

REACTIONS (2)
  - Pulmonary embolism [Fatal]
  - Hypoxia [Unknown]
